FAERS Safety Report 8771867 (Version 2)
Quarter: 2012Q4

REPORT INFORMATION
  Report Type: Report from Study
  Country: DE (occurrence: DE)
  Receive Date: 20120905
  Receipt Date: 20120917
  Transmission Date: 20130627
  Serious: Yes (Life-Threatening, Hospitalization)
  Sender: FDA-Public Use
  Company Number: DE-ROCHE-1115189

PATIENT
  Age: 53 Year
  Sex: Female

DRUGS (2)
  1. MIRCERA [Suspect]
     Indication: NEPHROGENIC ANAEMIA
     Route: 042
     Dates: start: 20111019
  2. MIRCERA [Suspect]
     Route: 042
     Dates: start: 20111109

REACTIONS (3)
  - Renal cyst [Recovered/Resolved]
  - Postoperative abscess [Recovered/Resolved]
  - Flank pain [Unknown]
